FAERS Safety Report 5400713-9 (Version None)
Quarter: 2007Q3

REPORT INFORMATION
  Report Type: 
  Country: None (occurrence: None)
  Receive Date: 20070730
  Receipt Date: 20070717
  Transmission Date: 20080115
  Serious: Yes (Other)
  Sender: FDA-Public Use
  Company Number: US-ELI_LILLY_AND_COMPANY-US200706005489

PATIENT
  Age: 51 Year
  Sex: Female
  Weight: 95.238 kg

DRUGS (2)
  1. CYMBALTA [Suspect]
     Dosage: 30 MG, DAILY (1/D)
     Route: 048
     Dates: start: 20061211, end: 20070208
  2. CELEBREX [Concomitant]
     Dosage: 200 MG, DAILY (1/D)

REACTIONS (2)
  - HEPATITIS [None]
  - NAUSEA [None]
